FAERS Safety Report 8077409-0 (Version None)
Quarter: 2012Q1

REPORT INFORMATION
  Report Type: 
  Country: None (occurrence: None)
  Receive Date: 20120127
  Receipt Date: 20120125
  Transmission Date: 20120608
  Serious: Yes (Death, Hospitalization, Other)
  Sender: FDA-Public Use
  Company Number: PHEH2006US01234

PATIENT
  Sex: Female
  Weight: 57 kg

DRUGS (13)
  1. ZOMETA [Suspect]
     Indication: METASTASES TO BONE
     Dosage: 4MG Q4WKS
     Route: 042
     Dates: start: 20021115, end: 20050801
  2. OXYCONTIN [Concomitant]
     Indication: PAIN
     Dosage: 40MG PRN
     Route: 048
  3. THALIDOMIDE [Concomitant]
     Indication: MULTIPLE MYELOMA
     Dosage: 50 MG, UNK
     Route: 048
     Dates: start: 20040419, end: 20040516
  4. NEXIUM [Concomitant]
     Dosage: 40 MG, QD
     Route: 048
  5. XANAX [Concomitant]
  6. PROCRIT [Concomitant]
     Indication: ANAEMIA
     Dosage: 40K-60K PRN
  7. VELCADE [Concomitant]
     Dosage: 2 MG, UNK
     Dates: start: 20040419, end: 20040611
  8. CYMBALTA [Concomitant]
     Dosage: 60 MG, QHS
     Route: 048
  9. VIOXX [Concomitant]
     Dosage: 25 MG, QD
     Route: 048
  10. VENTOLIN [Concomitant]
  11. DEXAMETHASONE [Concomitant]
     Indication: PAIN
     Dosage: PULSE THERAPY PRN
  12. AREDIA [Suspect]
     Indication: METASTASES TO BONE
     Dosage: 90 MG, QMO
     Route: 042
     Dates: start: 20040312, end: 20041221
  13. AUGMENTIN '125' [Concomitant]

REACTIONS (34)
  - DEHYDRATION [None]
  - ANAEMIA [None]
  - RENAL FAILURE ACUTE [None]
  - DEPRESSION [None]
  - PNEUMONIA [None]
  - NEOPLASM MALIGNANT [None]
  - RESPIRATORY FAILURE [None]
  - PAIN [None]
  - PAIN IN EXTREMITY [None]
  - SWELLING [None]
  - SKIN MASS [None]
  - UNRESPONSIVE TO STIMULI [None]
  - URINARY TRACT INFECTION [None]
  - CHRONIC OBSTRUCTIVE PULMONARY DISEASE [None]
  - BONE DISORDER [None]
  - OSTEOMYELITIS [None]
  - FISTULA [None]
  - HYPOTENSION [None]
  - HAEMATURIA [None]
  - ERYTHEMA [None]
  - ATRIAL FIBRILLATION [None]
  - PYURIA [None]
  - HYPOMAGNESAEMIA [None]
  - WOUND SECRETION [None]
  - TOOTH LOSS [None]
  - ATRIAL FLUTTER [None]
  - NEUROPATHY PERIPHERAL [None]
  - MENTAL STATUS CHANGES [None]
  - RENAL FAILURE [None]
  - OSTEONECROSIS OF JAW [None]
  - BREATH ODOUR [None]
  - FALL [None]
  - PNEUMOTHORAX [None]
  - SHOCK [None]
